FAERS Safety Report 17104956 (Version 2)
Quarter: 2020Q1

REPORT INFORMATION
  Report Type: Report from Study
  Country: IN (occurrence: IN)
  Receive Date: 20191203
  Receipt Date: 20200201
  Transmission Date: 20200409
  Serious: Yes (Other)
  Sender: FDA-Public Use
  Company Number: NVSC2019IN056042

PATIENT
  Sex: Male

DRUGS (3)
  1. SCAPHO [Suspect]
     Active Substance: SECUKINUMAB
     Indication: ANKYLOSING SPONDYLITIS
     Dosage: 150 MG, QMO
     Route: 058
     Dates: start: 20190905
  2. SCAPHO [Suspect]
     Active Substance: SECUKINUMAB
     Indication: PSORIASIS
     Dosage: 150 MG, QMO
     Route: 058
     Dates: start: 20191128
  3. SCAPHO [Suspect]
     Active Substance: SECUKINUMAB
     Dosage: 3 DF, Q2MO (300MG FOR 3 DOSES ONCE IN 2 MONTHS)
     Route: 058
     Dates: start: 20200126

REACTIONS (3)
  - Hypersensitivity vasculitis [Unknown]
  - Skin lesion [Unknown]
  - Inappropriate schedule of product administration [Unknown]
